FAERS Safety Report 26173257 (Version 1)
Quarter: 2025Q4

REPORT INFORMATION
  Report Type: Spontaneous
  Country: US (occurrence: US)
  Receive Date: 20251218
  Receipt Date: 20251218
  Transmission Date: 20260118
  Serious: Yes (Other)
  Sender: GC Biopharma
  Company Number: US-GC BIOPHARMA-US-2025-GCBP-00026

PATIENT
  Age: 49 Year
  Sex: Female
  Weight: 85.73 kg

DRUGS (4)
  1. ALYGLO [Suspect]
     Active Substance: HUMAN IMMUNOGLOBULIN G-STWK
     Indication: Myelin oligodendrocyte glycoprotein antibody-associated disease
     Dosage: 2 X 75 GRAM, 4W
     Route: 042
     Dates: start: 20251006, end: 20251006
  2. ALYGLO [Suspect]
     Active Substance: HUMAN IMMUNOGLOBULIN G-STWK
     Dosage: 2 X 75GRAM, 4W
     Route: 042
     Dates: start: 20250902, end: 20250902
  3. BENADRYL [Concomitant]
     Active Substance: DIPHENHYDRAMINE HYDROCHLORIDE
     Indication: Premedication
     Dosage: 25 MILLIGRAM, IVP OR PO
     Dates: start: 20251003, end: 20251003
  4. TYLENOL [Concomitant]
     Active Substance: ACETAMINOPHEN
     Indication: Premedication
     Dosage: 650 MILLIGRAM
     Route: 048
     Dates: start: 20251003, end: 20251003

REACTIONS (4)
  - Flushing [Recovered/Resolved]
  - Rash [Recovered/Resolved]
  - Urticaria [Recovered/Resolved]
  - Off label use [Unknown]

NARRATIVE: CASE EVENT DATE: 20250902
